FAERS Safety Report 4609300-3 (Version None)
Quarter: 2005Q2

REPORT INFORMATION
  Report Type: 
  Country: None (occurrence: None)
  Receive Date: 20050301
  Receipt Date: 20041028
  Transmission Date: 20051028
  Serious: No
  Sender: FDA-Public Use
  Company Number: WAES 0409USA00476

PATIENT
  Age: 76 Year
  Sex: Female
  Weight: 84.369 kg

DRUGS (4)
  1. ZETIA [Suspect]
     Indication: LIPIDS INCREASED
     Dosage: 10 MG/DAILY/PO
     Route: 048
     Dates: start: 20040707, end: 20040805
  2. ZETIA [Suspect]
     Indication: LIPIDS INCREASED
     Dosage: 10 MG/DAILY/PO
     Route: 048
     Dates: start: 20040805, end: 20040813
  3. CRESTOR [Concomitant]
  4. LIPITOR [Concomitant]

REACTIONS (2)
  - DIARRHOEA [None]
  - TINNITUS [None]
